FAERS Safety Report 5634302-8 (Version None)
Quarter: 2008Q1

REPORT INFORMATION
  Report Type: 
  Country: None (occurrence: None)
  Receive Date: 20080131
  Receipt Date: 20070907
  Transmission Date: 20080703
  Serious: Yes (Hospitalization)
  Sender: FDA-Public Use
  Company Number: 2007BH007570

PATIENT
  Age: 50 Year
  Sex: Female

DRUGS (5)
  1. DIANEAL [Suspect]
     Indication: RENAL FAILURE CHRONIC
     Dosage: IP
     Route: 033
  2. EXTRANEAL [Suspect]
     Indication: RENAL FAILURE CHRONIC
     Dosage: IP
     Route: 033
  3. EPOGEN [Concomitant]
  4. SENSIPAR [Concomitant]
  5. NEPHROCAPS [Concomitant]

REACTIONS (2)
  - DEVICE LEAKAGE [None]
  - PERITONITIS [None]
